FAERS Safety Report 18493119 (Version 2)
Quarter: 2021Q1

REPORT INFORMATION
  Report Type: Report from Study
  Country: US (occurrence: US)
  Receive Date: 20201111
  Receipt Date: 20210201
  Transmission Date: 20210419
  Serious: Yes (Death, Life-Threatening, Disabling)
  Sender: FDA-Public Use
  Company Number: US-SHIRE-US201936166

PATIENT
  Age: 87 Year
  Sex: Female
  Weight: 79.82 kg

DRUGS (14)
  1. HUMAN IMMUNOGLOBULIN; HYALURONIDASE [Suspect]
     Active Substance: HUMAN IMMUNOGLOBULIN G\HYALURONIDASE RECOMBINANT HUMAN
     Dosage: 400 MILLILITER, 20 ML OF RHUPH20, ONE DOSE
     Route: 058
     Dates: start: 20181210, end: 20181210
  2. HUMAN IMMUNOGLOBULIN; HYALURONIDASE [Suspect]
     Active Substance: HUMAN IMMUNOGLOBULIN G\HYALURONIDASE RECOMBINANT HUMAN
     Dosage: 400 MILLILITER, 20 ML OF RHUPH20, ONE DOSE
     Route: 058
     Dates: start: 20190107, end: 20190107
  3. HUMAN IMMUNOGLOBULIN; HYALURONIDASE [Suspect]
     Active Substance: HUMAN IMMUNOGLOBULIN G\HYALURONIDASE RECOMBINANT HUMAN
     Dosage: 400 MILLILITER, 20 ML OF RHUPH20, ONE DOSE
     Route: 058
     Dates: start: 20190408, end: 20190408
  4. HUMAN IMMUNOGLOBULIN; HYALURONIDASE [Suspect]
     Active Substance: HUMAN IMMUNOGLOBULIN G\HYALURONIDASE RECOMBINANT HUMAN
     Indication: HYPOGAMMAGLOBULINAEMIA
     Dosage: 400 MILLILITER, EVERY 4 WK
     Route: 058
     Dates: start: 20181112, end: 20181112
  5. HUMAN IMMUNOGLOBULIN; HYALURONIDASE [Suspect]
     Active Substance: HUMAN IMMUNOGLOBULIN G\HYALURONIDASE RECOMBINANT HUMAN
     Dosage: 400 MILLILITER, 20 ML OF RHUPH20, ONE DOSE
     Route: 058
     Dates: start: 20190311, end: 20190311
  6. AMLODIPINE BESYLATE. [Concomitant]
     Active Substance: AMLODIPINE BESYLATE
     Indication: HYPERTENSION
     Dosage: 2.5 MILLIGRAM, QD
     Route: 048
     Dates: start: 20170908
  7. LEUKERAN [Concomitant]
     Active Substance: CHLORAMBUCIL
     Indication: CHRONIC LYMPHOCYTIC LEUKAEMIA
     Dosage: 2 MILLIGRAM, QD
     Route: 048
     Dates: start: 20150603
  8. OXYCODONE [Concomitant]
     Active Substance: OXYCODONE
     Indication: ARTHRALGIA
     Dosage: 10 MILLIGRAM, PRN
     Route: 048
     Dates: start: 20170908
  9. DULOXETINE. [Concomitant]
     Active Substance: DULOXETINE
     Indication: ANXIETY
  10. ATENOLOL. [Concomitant]
     Active Substance: ATENOLOL
     Indication: HYPERTENSION
     Dosage: 50 MILLIGRAM, QD
     Route: 048
     Dates: start: 20170608
  11. DULOXETINE. [Concomitant]
     Active Substance: DULOXETINE
     Indication: DEPRESSION
     Dosage: 30 MILLIGRAM, QD
     Route: 048
     Dates: start: 20180228
  12. HUMAN IMMUNOGLOBULIN; HYALURONIDASE [Suspect]
     Active Substance: HUMAN IMMUNOGLOBULIN G\HYALURONIDASE RECOMBINANT HUMAN
     Dosage: 400 MILLILITER, 20 ML OF RHUPH20, ONE DOSE
     Route: 058
     Dates: start: 20190207, end: 20190207
  13. OXYCODONE [Concomitant]
     Active Substance: OXYCODONE
     Indication: PAIN
  14. FENTANYL DURA [Concomitant]
     Indication: PAIN
     Dosage: 25 MICROGRAM, PRN
     Route: 062
     Dates: start: 20180109

REACTIONS (1)
  - Chronic lymphocytic leukaemia [Fatal]

NARRATIVE: CASE EVENT DATE: 20191020
